FAERS Safety Report 13535184 (Version 1)
Quarter: 2017Q2

REPORT INFORMATION
  Report Type: Spontaneous
  Country: ID (occurrence: ID)
  Receive Date: 20170511
  Receipt Date: 20170511
  Transmission Date: 20170830
  Serious: Yes (Hospitalization)
  Sender: FDA-Public Use
  Company Number: ID-ASTRAZENECA-2017SE49720

PATIENT
  Sex: Female

DRUGS (1)
  1. SEROQUEL XR [Suspect]
     Active Substance: QUETIAPINE FUMARATE
     Indication: SCHIZOPHRENIA
     Dosage: MAINTENANCE DOSE, 200 MG DAILY
     Route: 048

REACTIONS (2)
  - Abnormal behaviour [Unknown]
  - Diabetes mellitus [Recovering/Resolving]
